FAERS Safety Report 8491533-X (Version None)
Quarter: 2012Q3

REPORT INFORMATION
  Report Type: 
  Country: None (occurrence: None)
  Receive Date: 20120706
  Receipt Date: 20120627
  Transmission Date: 20120928
  Serious: Yes (Other)
  Sender: FDA-Public Use
  Company Number: JP-ABBOTT-12P-087-0945220-00

PATIENT
  Sex: Female
  Weight: 40.8 kg

DRUGS (17)
  1. HUMIRA [Suspect]
     Indication: BEHCET'S SYNDROME
     Route: 058
     Dates: start: 20120419, end: 20120419
  2. PREDNISOLONE [Concomitant]
     Indication: IMMUNOSUPPRESSION
     Route: 048
     Dates: start: 20120503
  3. HUMIRA [Suspect]
     Dates: start: 20120503, end: 20120503
  4. HUMIRA [Suspect]
     Dates: start: 20120619
  5. COLCHICINE [Concomitant]
     Indication: BEHCET'S SYNDROME
     Route: 048
     Dates: start: 20120510, end: 20120519
  6. HUMIRA [Suspect]
     Dates: start: 20120528, end: 20120528
  7. COLCHICINE [Concomitant]
     Indication: NEUTROPHIL COUNT ABNORMAL
     Dates: start: 20120525
  8. IRSOGLADINE MALEATE [Concomitant]
     Indication: PROMOTION OF WOUND HEALING
  9. SULFAMETHOXAZOLE AND TRIMETHOPRIM [Concomitant]
     Dates: start: 20120525
  10. HUMIRA [Suspect]
     Dates: start: 20120517, end: 20120517
  11. SULFAMETHOXAZOLE AND TRIMETHOPRIM [Concomitant]
     Indication: ANTIFUNGAL PROPHYLAXIS
     Route: 048
     Dates: start: 20111114, end: 20111130
  12. MESALAMINE [Concomitant]
     Indication: BEHCET'S SYNDROME
     Route: 048
     Dates: start: 20120515
  13. RABEPRAZOLE SODIUM [Concomitant]
     Indication: BEHCET'S SYNDROME
  14. MESALAMINE [Concomitant]
     Indication: ANTIINFLAMMATORY THERAPY
  15. HUMIRA [Suspect]
     Dates: start: 20120604, end: 20120604
  16. HYDROCORTONE [Suspect]
     Indication: INHIBITING ANTIBODIES
     Dosage: 100MG X 1 AFTER THE ADMINISTRATION OF HUMIRA PRE-FILLED SYRINGE
     Route: 042
     Dates: start: 20120419
  17. IRSOGLADINE MALEATE [Concomitant]
     Indication: BEHCET'S SYNDROME
     Route: 048
     Dates: start: 20120502

REACTIONS (4)
  - PANCYTOPENIA [None]
  - ACINETOBACTER INFECTION [None]
  - IMMUNOSUPPRESSION [None]
  - FEBRILE NEUTROPENIA [None]
